FAERS Safety Report 9232752 (Version 1)
Quarter: 2013Q2

REPORT INFORMATION
  Report Type: Spontaneous
  Country: US (occurrence: None)
  Receive Date: 20130415
  Receipt Date: 20130415
  Transmission Date: 20140414
  Serious: Yes (Other)
  Sender: FDA-Public Use
  Company Number: None

PATIENT
  Age: 32 Year
  Sex: Male
  Weight: 77.11 kg

DRUGS (1)
  1. MOBIC [Suspect]
     Indication: ARTHRITIS
     Dates: start: 20130325, end: 20130331

REACTIONS (5)
  - Vision blurred [None]
  - Decreased appetite [None]
  - Diarrhoea [None]
  - Pain in extremity [None]
  - Pain [None]
